FAERS Safety Report 7522364-2 (Version None)
Quarter: 2011Q2

REPORT INFORMATION
  Report Type: 
  Country: None (occurrence: None)
  Receive Date: 20110603
  Receipt Date: 20110530
  Transmission Date: 20111010
  Serious: Yes (Hospitalization)
  Sender: FDA-Public Use
  Company Number: JP-B.I. PHARMACEUTICALS,INC./RIDGEFIELD-2011-BP-10656NB

PATIENT
  Age: 79 Year
  Sex: Male

DRUGS (3)
  1. PRADAXA [Suspect]
     Indication: ATRIAL FIBRILLATION
     Dosage: 220 MG
     Route: 048
     Dates: start: 20110324, end: 20110328
  2. LANSOPRAZOLE [Concomitant]
     Indication: LARGE INTESTINAL ULCER
  3. WARFARIN SODIUM [Concomitant]

REACTIONS (2)
  - MELAENA [None]
  - RECTAL HAEMORRHAGE [None]
